FAERS Safety Report 6496405-8 (Version None)
Quarter: 2009Q4

REPORT INFORMATION
  Report Type: 
  Country: None (occurrence: None)
  Receive Date: 20091214
  Receipt Date: 20090408
  Transmission Date: 20100525
  Serious: Yes (Death, Hospitalization)
  Sender: FDA-Public Use
  Company Number: FR-SANOFI-AVENTIS-D01200502691

PATIENT
  Age: 83 Year
  Sex: Female

DRUGS (6)
  1. CLOPIDOGREL BISULFATE [Suspect]
     Indication: ATRIAL FIBRILLATION
     Dosage: UNIT DOSE: 75 MG
     Route: 048
     Dates: start: 20050318, end: 20050326
  2. CLOPIDOGREL BISULFATE [Suspect]
     Dosage: UNIT DOSE: 75 MG
     Route: 048
     Dates: start: 20050331, end: 20050905
  3. BLINDED THERAPY [Concomitant]
     Indication: ATRIAL FIBRILLATION
     Dosage: DOSE TEXT: 150 MG/DAY FOR 2 WEEKS FOLLOWING BY 300 MG/DAYUNIT DOSE: 150 MG
     Route: 048
     Dates: start: 20050318, end: 20050326
  4. BLINDED THERAPY [Concomitant]
     Dosage: DOSE TEXT: 150 MG/DAY FOR 2 WEEKS FOLLOWING BY 300 MG/DAYUNIT DOSE: 150 MG
     Route: 048
     Dates: start: 20050331, end: 20050905
  5. KARDEGIC /FRA/ [Concomitant]
     Indication: ATRIAL FIBRILLATION
     Dosage: DOSE TEXT: 75 MG
     Route: 048
     Dates: start: 20050318
  6. LEVOTHYROXINE SODIUM [Concomitant]

REACTIONS (2)
  - COLON CANCER [None]
  - LOWER GASTROINTESTINAL HAEMORRHAGE [None]
